FAERS Safety Report 4790222-2 (Version None)
Quarter: 2005Q4

REPORT INFORMATION
  Report Type: 
  Country: None (occurrence: None)
  Receive Date: 20051005
  Receipt Date: 20051005
  Transmission Date: 20060501
  Serious: Yes (Hospitalization)
  Sender: FDA-Public Use
  Company Number: None

PATIENT
  Sex: Female
  Weight: 85 kg

DRUGS (2)
  1. GLIADEL [Suspect]
     Indication: GLIOBLASTOMA
     Dosage: 7.7 MGS PER WAFER-MAX OF 8
     Dates: start: 20050815
  2. O6-BENZYLGUANINE (O6BG) [Suspect]
     Indication: GLIOBLASTOMA
     Dosage: 30 MG/M2 INFUSION X 5 DAYS
     Dates: start: 20050815, end: 20050819

REACTIONS (2)
  - POSTOPERATIVE INFECTION [None]
  - STAPHYLOCOCCAL INFECTION [None]
